FAERS Safety Report 4705853-5 (Version None)
Quarter: 2005Q2

REPORT INFORMATION
  Report Type: 
  Country: None (occurrence: None)
  Receive Date: 20050629
  Receipt Date: 20050301
  Transmission Date: 20051028
  Serious: Yes (Hospitalization)
  Sender: FDA-Public Use
  Company Number: 05P-163-0292335-00

PATIENT
  Age: 83 Year
  Sex: Male
  Weight: 65.7716 kg

DRUGS (9)
  1. HUMIRA [Suspect]
     Indication: RHEUMATOID ARTHRITIS
     Dosage: 40 MG, 1 IN 2 WK, SUBCUTANEOUS
     Route: 058
     Dates: start: 20040101, end: 20050201
  2. HYDROXYCHLOROQUINE PHOSPHATE [Concomitant]
  3. HYDROXYCHLORIOQUINE [Concomitant]
  4. FOLIC ACID [Concomitant]
  5. HYDROCODONE [Concomitant]
  6. DIGOXIN [Concomitant]
  7. PREDNISONE TAB [Concomitant]
  8. ATENOLOL [Concomitant]
  9. RABEPRAZOLE SODIUM [Concomitant]

REACTIONS (1)
  - PNEUMONIA [None]
